FAERS Safety Report 9544053 (Version 1)
Quarter: 2013Q2

REPORT INFORMATION
  Report Type: Spontaneous
  Country: US (occurrence: None)
  Receive Date: 20130524
  Receipt Date: 20130524
  Transmission Date: 20140414
  Serious: Yes (Other)
  Sender: FDA-Public Use
  Company Number: PHEH2013US004127

PATIENT
  Age: 37 Year
  Sex: Female
  Weight: 69.8 kg

DRUGS (13)
  1. GILENYA [Suspect]
     Route: 048
  2. MULTI VIT (ASCORBIC ACID, BETACAROTENE, BIOTIN, CHROMIUM, COPPER, FOLIC ACID, IRON, LYCOPENE, MAGNESIUM, MANGANESE, MOLYBDENUM, NICOTINAMIDE, PANTOTHENIC ACID, POTASSIUM, PYRIDOXINE, RETINOL, RIBOFLAVIN, SELENIUM, SILICON, THIAMINE, TOCOPHEROL, VITAMIN B12 NOS, VITAMIN D NOS, ZINC) [Concomitant]
  3. FIBER (POLYCARBOPHIL CALCIUM) [Concomitant]
  4. WELLBUTRIN (BUPROPION HYDROCHLORIDE) [Concomitant]
  5. LUVOX (FLUVOXAMINE MALEATE) [Concomitant]
  6. LEVBID (HYOSCYAMINE SULFATE) [Concomitant]
  7. TOVIAZ (FESOTERODINE FUMARATE) [Concomitant]
  8. TOPAMAX (TOPIRAMATE) [Concomitant]
  9. XANAX (ALPRAZOLAM) [Concomitant]
  10. PROGIVIL (MODAFINIL) [Concomitant]
  11. PRILOSEC [Concomitant]
  12. MIRALAX [Concomitant]
  13. MOTRIN (IBUPROFEN) [Concomitant]

REACTIONS (2)
  - Temporomandibular joint syndrome [None]
  - Heart rate decreased [None]
